FAERS Safety Report 6140538-2 (Version None)
Quarter: 2009Q2

REPORT INFORMATION
  Report Type: 
  Country: None (occurrence: None)
  Receive Date: 20090402
  Receipt Date: 20090323
  Transmission Date: 20091009
  Serious: Yes (Life-Threatening, Other)
  Sender: FDA-Public Use
  Company Number: JP-PFIZER INC-2009188551

PATIENT

DRUGS (9)
  1. SUNITINIB MALATE [Suspect]
     Indication: RENAL CELL CARCINOMA
     Dosage: 50 MG, 1X/DAY
     Route: 048
     Dates: start: 20090116, end: 20090131
  2. LIPITOR [Concomitant]
     Route: 048
  3. FAMOTIDINE [Concomitant]
     Route: 048
  4. MARZULENE S [Concomitant]
     Route: 048
  5. BERIZYM [Concomitant]
     Route: 048
  6. DAI-KENCHU-TO [Concomitant]
     Route: 048
  7. ALESION [Concomitant]
     Dosage: UNK
     Route: 048
     Dates: start: 20090117
  8. ALLEGRA [Concomitant]
     Dosage: UNK
     Route: 048
     Dates: start: 20090117
  9. CRAVIT [Concomitant]
     Route: 048
     Dates: start: 20090129

REACTIONS (2)
  - GINGIVAL INFECTION [None]
  - PLATELET COUNT DECREASED [None]
